FAERS Safety Report 21851811 (Version 1)
Quarter: 2023Q1

REPORT INFORMATION
  Report Type: Spontaneous
  Country: JP (occurrence: JP)
  Receive Date: 20230112
  Receipt Date: 20230112
  Transmission Date: 20230417
  Serious: Yes (Other)
  Sender: FDA-Public Use
  Company Number: JP-SUN PHARMACEUTICAL INDUSTRIES LTD-2022RR-372665

PATIENT
  Age: 59 Year
  Sex: Female

DRUGS (6)
  1. AMLODIPINE [Suspect]
     Active Substance: AMLODIPINE BESYLATE
     Indication: Hypertension
     Dosage: 5 MILLIGRAM, DAILY
     Route: 065
  2. ATENOLOL [Suspect]
     Active Substance: ATENOLOL
     Indication: Hypertension
     Dosage: 12.5 MILLIGRAM, DAILY
     Route: 065
  3. CANDESARTAN [Suspect]
     Active Substance: CANDESARTAN
     Indication: Hypertension
     Dosage: 4 MILLIGRAM, DAILY
     Route: 065
  4. TELMISARTAN [Suspect]
     Active Substance: TELMISARTAN
     Indication: Hypertension
     Dosage: 20 MILLIGRAM, DAILY
     Route: 065
  5. CILNIDIPINE\TELMISARTAN [Suspect]
     Active Substance: CILNIDIPINE\TELMISARTAN
     Indication: Hypothyroidism
     Dosage: 10 MILLIGRAM, DAILY
     Route: 065
     Dates: start: 202209, end: 202210
  6. METHYLDOPA [Suspect]
     Active Substance: METHYLDOPA
     Indication: Hypertension
     Dosage: 750 MILLIGRAM, DAILY
     Route: 065

REACTIONS (7)
  - Drug ineffective [Unknown]
  - Palpitations [Unknown]
  - Drug intolerance [Unknown]
  - Malaise [Unknown]
  - Blood pressure systolic increased [Unknown]
  - Somnolence [Unknown]
  - Sluggishness [Unknown]
